FAERS Safety Report 14672712 (Version 4)
Quarter: 2018Q2

REPORT INFORMATION
  Report Type: Report from Study
  Country: ES (occurrence: ES)
  Receive Date: 20180323
  Receipt Date: 20180601
  Transmission Date: 20180711
  Serious: Yes (Hospitalization)
  Sender: FDA-Public Use
  Company Number: ES-ROCHE-2091802

PATIENT
  Age: 53 Year
  Sex: Female
  Weight: 61.1 kg

DRUGS (21)
  1. PACLITAXEL. [Suspect]
     Active Substance: PACLITAXEL
     Indication: BREAST CANCER METASTATIC
     Dosage: ON 21/FEB/2018, RECEIVED MOST RECENT DOSE AT 140 MG
     Route: 042
     Dates: start: 20180111
  2. DOXYCYCLINE. [Concomitant]
     Active Substance: DOXYCYCLINE
     Indication: RASH PUSTULAR
     Route: 048
     Dates: start: 20180207
  3. ONDANSETRON [Concomitant]
     Active Substance: ONDANSETRON
     Route: 048
     Dates: start: 20180221, end: 20180221
  4. RANITIDINE. [Concomitant]
     Active Substance: RANITIDINE
     Route: 042
     Dates: start: 20180221, end: 20180221
  5. FOSFOMICINA [Concomitant]
     Indication: URINARY TRACT INFECTION
     Route: 048
     Dates: start: 20180221, end: 20180221
  6. ENOXAPARINE SODIQUE [Concomitant]
     Active Substance: ENOXAPARIN SODIUM
     Indication: PROPHYLAXIS
     Route: 058
     Dates: start: 20180320, end: 20180323
  7. DEXAMETHASONE. [Concomitant]
     Active Substance: DEXAMETHASONE
     Route: 048
     Dates: start: 20180221, end: 20180221
  8. RANITIDINE. [Concomitant]
     Active Substance: RANITIDINE
     Indication: PREMEDICATION
     Route: 042
     Dates: start: 20180214, end: 20180214
  9. DEXKETOPROFEN [Concomitant]
     Active Substance: DEXKETOPROFEN
     Indication: PAIN
     Route: 042
     Dates: start: 20180314, end: 20180323
  10. COBIMETINIB. [Suspect]
     Active Substance: COBIMETINIB
     Indication: BREAST CANCER METASTATIC
     Dosage: ON 01/MAR/2018, RECEIVED MOST RECENT DOSE 60 MG
     Route: 048
     Dates: start: 20180113
  11. ATEZOLIZUMAB. [Suspect]
     Active Substance: ATEZOLIZUMAB
     Indication: BREAST CANCER METASTATIC
     Dosage: ON 21/FEB/2018, RECEIVED MOST RECENT DOSE AT 840 MG
     Route: 042
     Dates: start: 20180111
  12. LOPERAMIDE [Concomitant]
     Active Substance: LOPERAMIDE
     Route: 048
     Dates: start: 20180314, end: 20180323
  13. ONDANSETRON [Concomitant]
     Active Substance: ONDANSETRON
     Indication: PREMEDICATION
     Route: 048
     Dates: start: 20180214, end: 20180214
  14. OMEPRAZOL [Concomitant]
     Active Substance: OMEPRAZOLE
     Indication: PROPHYLAXIS
     Route: 048
     Dates: start: 20180314, end: 20180323
  15. DEXAMETHASONE. [Concomitant]
     Active Substance: DEXAMETHASONE
     Indication: PREMEDICATION
     Route: 048
     Dates: start: 20180214, end: 20180214
  16. DEXCHLORPHENIRAMINE [Concomitant]
     Active Substance: DEXCHLORPHENIRAMINE
     Route: 042
     Dates: start: 20180221, end: 20180221
  17. LOPERAMIDE [Concomitant]
     Active Substance: LOPERAMIDE
     Indication: DIARRHOEA
     Route: 048
     Dates: start: 20180117
  18. DEXCHLORPHENIRAMINE [Concomitant]
     Active Substance: DEXCHLORPHENIRAMINE
     Indication: PREMEDICATION
     Route: 042
     Dates: start: 20180214, end: 20180214
  19. PARACETAMOL [Concomitant]
     Active Substance: ACETAMINOPHEN
     Indication: PAIN
     Route: 042
     Dates: start: 20180314, end: 20180323
  20. ORFIDAL [Concomitant]
     Active Substance: LORAZEPAM
     Route: 048
     Dates: start: 201711
  21. LORAZEPAM. [Concomitant]
     Active Substance: LORAZEPAM
     Route: 048
     Dates: start: 20180321, end: 20180323

REACTIONS (1)
  - Optic neuritis [Recovered/Resolved]

NARRATIVE: CASE EVENT DATE: 20180314
